FAERS Safety Report 16838550 (Version 1)
Quarter: 2019Q3

REPORT INFORMATION
  Report Type: Spontaneous
  Country: US (occurrence: US)
  Receive Date: 20190923
  Receipt Date: 20190923
  Transmission Date: 20191005
  Serious: No
  Sender: FDA-Public Use
  Company Number: US-TAKEDA-2019TUS053020

PATIENT
  Sex: Female
  Weight: 79.82 kg

DRUGS (10)
  1. DEXAMETHASONE. [Concomitant]
     Active Substance: DEXAMETHASONE
     Indication: PRODUCT USE IN UNAPPROVED INDICATION
     Dosage: 4 MILLIGRAM
     Route: 048
  2. LINUM USITATISSIMUM SEED OIL [Concomitant]
     Indication: PRODUCT USE IN UNAPPROVED INDICATION
     Dosage: 1000 MILLIGRAM
     Route: 065
  3. MELATONIN [Concomitant]
     Active Substance: MELATONIN
     Indication: PRODUCT USE IN UNAPPROVED INDICATION
     Dosage: 10 MILLIGRAM
     Route: 065
  4. VITAMIN D3 [Concomitant]
     Active Substance: CHOLECALCIFEROL
     Indication: PRODUCT USE IN UNAPPROVED INDICATION
     Dosage: 1000 INTERNATIONAL UNIT
  5. VITAMIN E                          /00110501/ [Concomitant]
     Active Substance: TOCOPHEROL
     Indication: PRODUCT USE IN UNAPPROVED INDICATION
     Route: 065
  6. VELCADE [Suspect]
     Active Substance: BORTEZOMIB
     Indication: PLASMA CELL MYELOMA
     Dosage: UNK
     Route: 065
     Dates: start: 201902
  7. REVLIMID [Suspect]
     Active Substance: LENALIDOMIDE
     Indication: PLASMA CELL MYELOMA
     Dosage: 25 MILLIGRAM, QD
     Route: 048
     Dates: start: 201902
  8. SEROTONIN [Concomitant]
     Active Substance: SEROTONIN
     Indication: PRODUCT USE IN UNAPPROVED INDICATION
     Dosage: 97 PERCENT
     Route: 065
  9. SPIRULINA SPP. [Concomitant]
     Indication: PRODUCT USE IN UNAPPROVED INDICATION
     Route: 065
  10. OMEGA 3                            /01333901/ [Concomitant]
     Active Substance: FISH OIL\TOCOPHEROL
     Indication: PRODUCT USE IN UNAPPROVED INDICATION
     Dosage: UNK
     Route: 065

REACTIONS (7)
  - Paraesthesia [Unknown]
  - Rash [Unknown]
  - Peripheral coldness [Unknown]
  - Urinary tract infection [Unknown]
  - Hypoaesthesia [Unknown]
  - Feeling hot [Unknown]
  - Neuropathy peripheral [Not Recovered/Not Resolved]
